FAERS Safety Report 11433014 (Version 1)
Quarter: 2015Q3

REPORT INFORMATION
  Report Type: Spontaneous
  Country: US (occurrence: None)
  Receive Date: 20150827
  Receipt Date: 20150827
  Transmission Date: 20151125
  Serious: Yes (Death, Hospitalization, Other)
  Sender: FDA-Public Use
  Company Number: US-2015INT000506

PATIENT
  Age: 65 Year
  Sex: Male
  Weight: 143 kg

DRUGS (3)
  1. FLUOROURACIL (FLUOROURACIL) [Suspect]
     Active Substance: FLUOROURACIL
     Indication: OESOPHAGEAL CARCINOMA
     Dosage: INITIAL FULL-DOSE, 24% DOSE REDUCTION
  2. CISPLATIN. [Suspect]
     Active Substance: CISPLATIN
     Indication: OESOPHAGEAL CARCINOMA
     Dosage: INITIAL FULL-DOSE
  3. RADIOTHERAPY [Suspect]
     Active Substance: RADIATION THERAPY
     Indication: OESOPHAGEAL CARCINOMA
     Dosage: 2340 CGY

REACTIONS (5)
  - Sudden death [None]
  - Syncope [None]
  - Pulse absent [None]
  - Renal failure [None]
  - Atrioventricular block [None]
